FAERS Safety Report 5898276-7 (Version None)
Quarter: 2008Q3

REPORT INFORMATION
  Report Type: 
  Country: None (occurrence: None)
  Receive Date: 20080925
  Receipt Date: 20070810
  Transmission Date: 20090109
  Serious: No
  Sender: FDA-Public Use
  Company Number: A0670201A

PATIENT
  Age: 76 Year
  Sex: Male

DRUGS (7)
  1. WELLBUTRIN XL [Suspect]
     Indication: DEPRESSION
     Dosage: 150MG PER DAY
     Route: 048
     Dates: start: 20060101
  2. CELEXA [Suspect]
     Indication: DEPRESSION
     Route: 048
     Dates: start: 20060101
  3. SINEMET [Concomitant]
  4. COMTAN [Concomitant]
  5. FLOMAX [Concomitant]
  6. UNKNOWN STOMACH MEDICATION [Concomitant]
  7. ASPIRIN [Concomitant]

REACTIONS (4)
  - ASTHENIA [None]
  - DECREASED ACTIVITY [None]
  - DRUG INTERACTION [None]
  - FATIGUE [None]
